FAERS Safety Report 13643248 (Version 12)
Quarter: 2017Q3

REPORT INFORMATION
  Report Type: Spontaneous
  Country: US (occurrence: IT)
  Receive Date: 20170612
  Receipt Date: 20170828
  Transmission Date: 20171127
  Serious: Yes (Death, Hospitalization, Other)
  Sender: FDA-Public Use
  Company Number: US-ALEXION PHARMACEUTICALS INC.-A201706424

PATIENT
  Sex: Female
  Weight: 16 kg

DRUGS (3)
  1. SOLIRIS [Suspect]
     Active Substance: ECULIZUMAB
     Indication: RENAL DISORDER
     Dosage: UNK, TIW
     Route: 042
     Dates: start: 2016
  2. DEFIBROTIDE [Suspect]
     Active Substance: DEFIBROTIDE (BOVINE)
     Indication: PRODUCT USED FOR UNKNOWN INDICATION
     Route: 065
  3. SOLIRIS [Suspect]
     Active Substance: ECULIZUMAB
     Indication: OFF LABEL USE
     Dosage: UNK UNK, QW
     Route: 042

REACTIONS (53)
  - Malaise [Unknown]
  - Headache [Unknown]
  - Hypertension [Unknown]
  - Somnolence [Unknown]
  - Haemorrhage [Unknown]
  - Renal failure [Unknown]
  - Brain oedema [Recovering/Resolving]
  - Cerebral haemorrhage [Recovering/Resolving]
  - Crying [Unknown]
  - Blood pressure increased [Unknown]
  - Epistaxis [Recovered/Resolved]
  - Oxygen saturation abnormal [Unknown]
  - Blood bilirubin increased [Unknown]
  - Off label use [Unknown]
  - Posterior reversible encephalopathy syndrome [Unknown]
  - Weight decreased [Unknown]
  - Lung disorder [Unknown]
  - Graft versus host disease [Unknown]
  - Neutrophil count abnormal [Unknown]
  - Cardiac function test abnormal [Unknown]
  - Liver disorder [Unknown]
  - Haemoglobin decreased [Unknown]
  - Asthenia [Unknown]
  - Oedema [Unknown]
  - Swelling [Unknown]
  - Bone marrow disorder [Unknown]
  - Seizure [Unknown]
  - Contusion [Unknown]
  - Irritability [Unknown]
  - Frustration tolerance decreased [Unknown]
  - Platelet count decreased [Unknown]
  - Chest pain [Unknown]
  - Ascites [Unknown]
  - Blood urine present [Unknown]
  - Feeling abnormal [Unknown]
  - Hepatic enzyme increased [Unknown]
  - Fluid retention [Unknown]
  - Secretion discharge [Unknown]
  - Haematochezia [Unknown]
  - Dyspnoea [Recovered/Resolved]
  - Sleep disorder [Unknown]
  - Drug administered to patient of inappropriate age [Unknown]
  - Abdominal pain upper [Unknown]
  - Pericardial effusion [Recovering/Resolving]
  - Cardiac disorder [Recovering/Resolving]
  - Brain injury [Recovering/Resolving]
  - Dysphagia [Unknown]
  - Thrombotic microangiopathy [Unknown]
  - Vomiting [Unknown]
  - Renal disorder [Fatal]
  - Hepatic failure [Unknown]
  - Haematemesis [Recovered/Resolved]
  - Vital functions abnormal [Unknown]

NARRATIVE: CASE EVENT DATE: 2016
